FAERS Safety Report 6301364-4 (Version None)
Quarter: 2009Q3

REPORT INFORMATION
  Report Type: 
  Country: None (occurrence: None)
  Receive Date: 20090807
  Receipt Date: 20090731
  Transmission Date: 20100115
  Serious: No
  Sender: FDA-Public Use
  Company Number: JP-EISAI INC.-E3810-02953-CLI-JP

PATIENT
  Sex: Female
  Weight: 45 kg

DRUGS (16)
  1. PARIET (RABEPRAZOLE) [Suspect]
     Indication: REFLUX OESOPHAGITIS
     Route: 048
     Dates: start: 20090223
  2. CALFALEAD [Concomitant]
     Indication: OSTEOPOROSIS
     Route: 048
     Dates: start: 19960126
  3. MYORELARK [Concomitant]
     Indication: OSTEOPOROSIS
     Route: 048
     Dates: start: 19960126
  4. MOVININ [Concomitant]
     Indication: OSTEOPOROSIS
     Route: 048
     Dates: start: 19970221
  5. PRIMPERAN [Concomitant]
     Indication: REFLUX OESOPHAGITIS
     Route: 048
  6. LERITE [Concomitant]
     Indication: HYPERTENSION
     Route: 048
     Dates: start: 20020322
  7. NINOBARCUN [Concomitant]
     Indication: HYPERTENSION
     Route: 048
     Dates: start: 20040305, end: 20090430
  8. NIFEDIPINE [Concomitant]
     Indication: HYPERTENSION
     Route: 048
     Dates: start: 20090501
  9. ORCL [Concomitant]
     Indication: RHEUMATOID ARTHRITIS
     Route: 048
     Dates: start: 20051114
  10. FERROMIA [Concomitant]
     Indication: IRON DEFICIENCY
     Route: 048
     Dates: start: 20080220
  11. FOSAMAC [Concomitant]
     Indication: OSTEOPOROSIS
     Route: 048
     Dates: start: 20080305
  12. FUROSEMIDE [Concomitant]
     Indication: CARDIAC FAILURE CHRONIC
     Route: 048
     Dates: start: 20090610
  13. FUROSEMIDE [Concomitant]
     Route: 048
     Dates: start: 20090510, end: 20090531
  14. FUROSEMIDE [Concomitant]
     Route: 048
     Dates: start: 20090430, end: 20090510
  15. EKATENIN [Concomitant]
     Indication: OSTEOPOROSIS
     Dosage: UNKNOWN
     Route: 065
  16. ASPIRIN [Concomitant]
     Route: 048
     Dates: start: 20090501

REACTIONS (1)
  - SUPRAVENTRICULAR TACHYCARDIA [None]
